FAERS Safety Report 8224256-2 (Version None)
Quarter: 2012Q1

REPORT INFORMATION
  Report Type: 
  Country: None (occurrence: None)
  Receive Date: 20120319
  Receipt Date: 20120307
  Transmission Date: 20120608
  Serious: Yes (Other)
  Sender: FDA-Public Use
  Company Number: GGEL20120300242

PATIENT
  Age: 30 Year
  Sex: Female

DRUGS (1)
  1. NORGESTIMATE AND ETHINYL ESTRADIOL (NORGESTIMATE, EETHINYL ESTRADIOL)( [Suspect]
     Indication: CONTRACEPTION
     Dosage: 1 IN 1 D, ORAL
     Route: 048
     Dates: start: 20120205, end: 20120306

REACTIONS (3)
  - PRODUCT QUALITY ISSUE [None]
  - DRUG INEFFECTIVE [None]
  - PREGNANCY ON ORAL CONTRACEPTIVE [None]
